FAERS Safety Report 13798144 (Version 1)
Quarter: 2017Q3

REPORT INFORMATION
  Report Type: Spontaneous
  Country: US (occurrence: US)
  Receive Date: 20170726
  Receipt Date: 20170726
  Transmission Date: 20171127
  Serious: No
  Sender: FDA-Public Use
  Company Number: None

PATIENT
  Sex: Female
  Weight: 103.5 kg

DRUGS (11)
  1. SYNTHROID [Concomitant]
     Active Substance: LEVOTHYROXINE SODIUM
  2. TYLENOL [Concomitant]
     Active Substance: ACETAMINOPHEN
  3. DIGITEK [Concomitant]
     Active Substance: DIGOXIN
  4. FEMARA [Concomitant]
     Active Substance: LETROZOLE
  5. ELIQUIS [Concomitant]
     Active Substance: APIXABAN
  6. RANITIDINE. [Concomitant]
     Active Substance: RANITIDINE
  7. FLUOXETINE [Concomitant]
     Active Substance: FLUOXETINE HYDROCHLORIDE
  8. LOPERAMIDE [Concomitant]
     Active Substance: LOPERAMIDE
  9. TARCEVA [Suspect]
     Active Substance: ERLOTINIB HYDROCHLORIDE
     Indication: LUNG NEOPLASM MALIGNANT
     Route: 048
     Dates: start: 20170707
  10. COREG [Concomitant]
     Active Substance: CARVEDILOL
  11. CELEBREX [Concomitant]
     Active Substance: CELECOXIB

REACTIONS (3)
  - Acne [None]
  - Vaginal ulceration [None]
  - Stomatitis [None]
